FAERS Safety Report 6752629-3 (Version None)
Quarter: 2010Q2

REPORT INFORMATION
  Report Type: 
  Country: None (occurrence: None)
  Receive Date: 20100602
  Receipt Date: 20100524
  Transmission Date: 20101027
  Serious: Yes (Other)
  Sender: FDA-Public Use
  Company Number: US-WATSON-2010-06921

PATIENT
  Age: 50 Year
  Sex: Male

DRUGS (10)
  1. NORCO (UNKNOWN) (WATSON LABORATORIES) [Suspect]
     Indication: PAIN
     Dosage: UNK
     Route: 048
  2. VARENICLINE [Suspect]
     Indication: TOBACCO USER
     Dosage: 0.5 MG, UNKNOWN
     Route: 048
     Dates: start: 20100309, end: 20100318
  3. NEURONTIN [Suspect]
     Indication: DRUG USE FOR UNKNOWN INDICATION
  4. MORPHIN HCL [Suspect]
     Indication: PAIN
  5. CYMBALTA [Suspect]
     Indication: DEPRESSION
  6. ACTOS [Concomitant]
     Indication: DIABETES MELLITUS
  7. TEMAZEPAM [Concomitant]
     Indication: DRUG USE FOR UNKNOWN INDICATION
  8. SIMVASTATIN [Concomitant]
     Indication: DRUG USE FOR UNKNOWN INDICATION
  9. RANITIDINE [Concomitant]
     Indication: DRUG USE FOR UNKNOWN INDICATION
  10. MONOPRIL [Concomitant]
     Indication: DRUG USE FOR UNKNOWN INDICATION

REACTIONS (9)
  - BLOOD GLUCOSE DECREASED [None]
  - DEPRESSED MOOD [None]
  - DEPRESSION [None]
  - DRUG EFFECT DECREASED [None]
  - DRUG INTERACTION [None]
  - FATIGUE [None]
  - INFLUENZA LIKE ILLNESS [None]
  - NAUSEA [None]
  - PAIN [None]
